FAERS Safety Report 18509134 (Version 1)
Quarter: 2020Q4

REPORT INFORMATION
  Report Type: Spontaneous
  Country: FR (occurrence: FR)
  Receive Date: 20201117
  Receipt Date: 20201117
  Transmission Date: 20210114
  Serious: Yes (Hospitalization, Other)
  Sender: FDA-Public Use
  Company Number: FR-AUROBINDO-AUR-APL-2020-056080

PATIENT
  Age: 32 Year
  Sex: Male

DRUGS (2)
  1. RODOGYL [Concomitant]
     Active Substance: METRONIDAZOLE\SPIRAMYCIN
     Indication: OEDEMA
     Dosage: UNSPECIFIED
     Route: 048
     Dates: start: 20201015
  2. IBUPROFEN. [Suspect]
     Active Substance: IBUPROFEN
     Indication: TOOTHACHE
     Dosage: 200 MILLIGRAM
     Route: 048
     Dates: start: 20201013

REACTIONS (1)
  - Cellulitis [Not Recovered/Not Resolved]

NARRATIVE: CASE EVENT DATE: 20201015
